FAERS Safety Report 7902074-X (Version None)
Quarter: 2011Q4

REPORT INFORMATION
  Report Type: 
  Country: None (occurrence: None)
  Receive Date: 20111108
  Receipt Date: 20111028
  Transmission Date: 20120403
  Serious: Yes (Life-Threatening, Hospitalization)
  Sender: FDA-Public Use
  Company Number: US-BAYER-2011-060845

PATIENT
  Age: 32 Year
  Sex: Female
  Weight: 75.4 kg

DRUGS (5)
  1. CAPADEX [Concomitant]
     Dosage: 60 MG, QD
     Route: 048
  2. CYCLOBENZAPRINE [Concomitant]
     Dosage: 10 MG, UNK
  3. TOPAMAX [Concomitant]
     Dosage: 15 MG, UNK
  4. YAZ [Suspect]
     Indication: CONTRACEPTION
     Dosage: UNK
     Dates: start: 20081001, end: 20091101
  5. HYDROCHLOROTHIAZIDE [Concomitant]
     Dosage: UNK
     Dates: start: 20090210

REACTIONS (9)
  - CHOLELITHIASIS [None]
  - INJURY [None]
  - PAIN [None]
  - FEAR [None]
  - CHOLECYSTITIS CHRONIC [None]
  - CHOLECYSTITIS [None]
  - ANHEDONIA [None]
  - ANXIETY [None]
  - EMOTIONAL DISTRESS [None]
